FAERS Safety Report 13121609 (Version 1)
Quarter: 2017Q1

REPORT INFORMATION
  Report Type: Spontaneous
  Country: US (occurrence: US)
  Receive Date: 20170115
  Receipt Date: 20170115
  Transmission Date: 20170428
  Serious: Yes (Other)
  Sender: FDA-Public Use
  Company Number: None

PATIENT
  Age: 60 Day
  Sex: Male
  Weight: 68.4 kg

DRUGS (8)
  1. FIORICET [Concomitant]
     Active Substance: ACETAMINOPHEN\BUTALBITAL\CAFFEINE
  2. POTASSIUM [Concomitant]
     Active Substance: POTASSIUM
  3. IMODIUM [Concomitant]
     Active Substance: LOPERAMIDE HYDROCHLORIDE
  4. BOTOX [Suspect]
     Active Substance: ONABOTULINUMTOXINA
     Indication: MIGRAINE
     Dates: start: 20161028, end: 20161028
  5. TENS UNIT [Concomitant]
  6. BENADRYL [Concomitant]
     Active Substance: DIPHENHYDRAMINE HYDROCHLORIDE
  7. XANAX [Concomitant]
     Active Substance: ALPRAZOLAM
  8. STADOL NS [Concomitant]
     Active Substance: BUTORPHANOL TARTRATE

REACTIONS (16)
  - Impaired driving ability [None]
  - Pain in jaw [None]
  - Musculoskeletal pain [None]
  - Diplopia [None]
  - Injection site reaction [None]
  - Headache [None]
  - Middle insomnia [None]
  - Mastication disorder [None]
  - Back pain [None]
  - Eyelid ptosis [None]
  - Gait disturbance [None]
  - Vision blurred [None]
  - Asthenia [None]
  - Dizziness [None]
  - Pain [None]
  - Fall [None]

NARRATIVE: CASE EVENT DATE: 20161028
